FAERS Safety Report 23511694 (Version 2)
Quarter: 2024Q1

REPORT INFORMATION
  Report Type: Spontaneous
  Country: IT (occurrence: IT)
  Receive Date: 20240212
  Receipt Date: 20240214
  Transmission Date: 20240410
  Serious: Yes (Hospitalization)
  Sender: FDA-Public Use
  Company Number: None

PATIENT
  Age: 14 Year
  Sex: Female

DRUGS (6)
  1. CARBAMAZEPINE [Suspect]
     Active Substance: CARBAMAZEPINE
     Indication: Intentional overdose
     Dosage: 4 DOSAGE FORM (RIFERITA ASSUNZIONE IN TEMPI DIVERSI, PROBABILMENTE NELL^ARCO DI DUE ORE)
     Route: 048
     Dates: start: 20240122, end: 20240122
  2. LASIX [Suspect]
     Active Substance: FUROSEMIDE
     Indication: Drug abuse
     Dosage: 50 MG
     Route: 048
     Dates: start: 20240122, end: 20240122
  3. IBUPROFEN SODIUM [Suspect]
     Active Substance: IBUPROFEN SODIUM
     Indication: Intentional overdose
     Dosage: 400 MG
     Route: 048
     Dates: start: 20240122, end: 20240122
  4. DOMPERIDONE [Suspect]
     Active Substance: DOMPERIDONE
     Indication: Intentional overdose
     Dosage: 4 DOSAGE FORM (RIFERITA ASSUNZIONE IN TEMPI DIVERSI, PROBABILMENTE NELL^ARCO DI DUE ORE)
     Route: 048
     Dates: start: 20240122, end: 20240122
  5. TACHIPIRINA [Suspect]
     Active Substance: ACETAMINOPHEN
     Indication: Intentional overdose
     Dosage: 6 G (RIFERITA ASSUNZIONE IN TEMPI DIVERSI, PROBABILMENTE NELL^ARCO DI DUE ORE)
     Route: 048
     Dates: start: 20240122, end: 20240122
  6. ACETAMINOPHEN\PSEUDOEPHEDRINE HYDROCHLORIDE\TRIPROLIDINE HYDROCHLORIDE [Suspect]
     Active Substance: ACETAMINOPHEN\PSEUDOEPHEDRINE HYDROCHLORIDE\TRIPROLIDINE HYDROCHLORIDE
     Indication: Intentional overdose
     Dosage: 6 DOSAGE FORM (RIFERITA ASSUNZIONE IN TEMPI DIVERSI, PROBABILMENTE NELL^ARCO DI DUE ORE)
     Route: 048
     Dates: start: 20240122, end: 20240122

REACTIONS (5)
  - Abdominal pain [Not Recovered/Not Resolved]
  - Nausea [Not Recovered/Not Resolved]
  - Polyuria [Not Recovered/Not Resolved]
  - Vomiting [Not Recovered/Not Resolved]
  - Intentional overdose [Not Recovered/Not Resolved]

NARRATIVE: CASE EVENT DATE: 20240122
